FAERS Safety Report 8492748-7 (Version None)
Quarter: 2012Q3

REPORT INFORMATION
  Report Type: 
  Country: None (occurrence: None)
  Receive Date: 20120706
  Receipt Date: 20120703
  Transmission Date: 20120928
  Serious: Yes (Life-Threatening, Hospitalization)
  Sender: FDA-Public Use
  Company Number: ES-B.I. PHARMACEUTICALS,INC./RIDGEFIELD-2012-ES-00272ES

PATIENT
  Age: 83 Year
  Sex: Female

DRUGS (10)
  1. LEVOTIROXINA [Concomitant]
     Indication: HYPOTHYROIDISM
     Dosage: 125 MCG
     Route: 048
  2. FERROUS SULFATE TAB [Concomitant]
     Dates: start: 20111201
  3. SIMVASTATIN [Concomitant]
     Indication: HYPERLIPIDAEMIA
     Dosage: 40 MG
     Route: 048
  4. AMIODARONA [Concomitant]
     Indication: ATRIAL FIBRILLATION
     Dosage: 200 MG
     Route: 048
     Dates: start: 20111201
  5. HIDRALAZINA [Concomitant]
     Dosage: 25 MG
  6. PRADAXA [Suspect]
     Indication: ATRIAL FIBRILLATION
     Dosage: 220 MG
     Route: 048
     Dates: start: 20111201, end: 20120525
  7. LOSARTAN POTASSIUM [Concomitant]
     Indication: HYPERTENSION
     Dosage: 50 MG
     Route: 048
     Dates: start: 20111201
  8. FUROSEMIDE [Concomitant]
     Dosage: 80 MG
  9. NITROGLICERINA [Concomitant]
     Dosage: 10 MG
  10. OMEPRAZOLE [Concomitant]
     Indication: PROPHYLAXIS
     Dosage: 20 MG
     Route: 048

REACTIONS (7)
  - UPPER GASTROINTESTINAL HAEMORRHAGE [None]
  - DIARRHOEA [None]
  - ORAL ADMINISTRATION COMPLICATION [None]
  - VOMITING [None]
  - RENAL FAILURE ACUTE [None]
  - ASTHENIA [None]
  - ANAEMIA [None]
